FAERS Safety Report 20803670 (Version 3)
Quarter: 2022Q3

REPORT INFORMATION
  Report Type: Spontaneous
  Country: US (occurrence: US)
  Receive Date: 20220509
  Receipt Date: 20220906
  Transmission Date: 20221027
  Serious: No
  Sender: FDA-Public Use
  Company Number: US-PFIZER INC-202200150245

PATIENT
  Age: 57 Year
  Sex: Female

DRUGS (1)
  1. XELJANZ XR [Suspect]
     Active Substance: TOFACITINIB CITRATE
     Dosage: 11 MG

REACTIONS (10)
  - Product dose omission issue [Unknown]
  - Joint stiffness [Unknown]
  - Muscular weakness [Unknown]
  - Blood cholesterol increased [Unknown]
  - Insomnia [Unknown]
  - Depression [Unknown]
  - Fatigue [Unknown]
  - Asthenia [Unknown]
  - Disturbance in attention [Unknown]
  - Restlessness [Unknown]
